FAERS Safety Report 8661661 (Version 2)
Quarter: 2012Q4

REPORT INFORMATION
  Report Type: 
  Country: AU (occurrence: AU)
  Receive Date: 20120712
  Receipt Date: 20120903
  Transmission Date: 20130627
  Serious: Yes (Hospitalization)
  Sender: FDA-Public Use
  Company Number: AU-BRISTOL-MYERS SQUIBB COMPANY-16742652

PATIENT
  Age: 87 Year
  Sex: Female

DRUGS (9)
  1. ORENCIA [Suspect]
     Dosage: last inf on 05Jun12
     Route: 042
     Dates: start: 20120314
  2. THYROXINE [Concomitant]
     Route: 048
  3. LIPITOR [Concomitant]
     Route: 048
  4. PANTOPRAZOLE [Concomitant]
     Route: 048
  5. DIAMICRON [Concomitant]
     Route: 048
  6. MEGAFOL [Concomitant]
     Route: 048
  7. FUROSEMIDE [Concomitant]
     Route: 048
  8. DIAFORMIN [Concomitant]
     Route: 048
  9. ASPIRIN [Concomitant]
     Route: 048

REACTIONS (5)
  - Aphasia [Not Recovered/Not Resolved]
  - Memory impairment [Unknown]
  - Fall [Unknown]
  - Chest injury [Unknown]
  - Joint injury [Unknown]
